FAERS Safety Report 4581962-9 (Version None)
Quarter: 2005Q1

REPORT INFORMATION
  Report Type: 
  Country: None (occurrence: None)
  Receive Date: 20050214
  Receipt Date: 20050204
  Transmission Date: 20050727
  Serious: Yes (Disabling)
  Sender: FDA-Public Use
  Company Number: IT-ABBOTT-05P-083-0289815-00

PATIENT
  Sex: Male

DRUGS (2)
  1. DEPAKIN SOLUTION [Suspect]
     Indication: PETIT MAL EPILEPSY
     Route: 048
     Dates: start: 19920101, end: 20040525
  2. CLONAZEPAM [Concomitant]
     Indication: PETIT MAL EPILEPSY
     Route: 048

REACTIONS (3)
  - FANCONI SYNDROME ACQUIRED [None]
  - FRACTURE [None]
  - MULTIPLE FRACTURES [None]
